FAERS Safety Report 6887862 (Version 1)
Quarter: 2020Q3

REPORT INFORMATION
  Report Type: Report from Study
  Country: US (occurrence: US)
  Receive Date: 20090121
  Receipt Date: 20090121
  Transmission Date: 20201104
  Serious: Yes (Hospitalization)
  Sender: FDA-Public Use
  Company Number: US-ROCHE-608144

PATIENT
  Age: 50 Year
  Sex: Female
  Weight: 80.5 kg

DRUGS (1)
  1. IBANDRONIC ACID. [Suspect]
     Active Substance: IBANDRONIC ACID
     Dosage: LAST DOSE PRIOR TO SAE: 22 DECEMBER 2008. STUDY DRUG CONTINUE AFTER 22 DECEMBER 2008 WITHOUT CHANGES
     Route: 048
     Dates: start: 20070718

REACTIONS (1)
  - Cholecystitis [Recovered/Resolved]

NARRATIVE: CASE EVENT DATE: 20081222
